FAERS Safety Report 19173327 (Version 2)
Quarter: 2021Q2

REPORT INFORMATION
  Report Type: Report from Study
  Country: JP (occurrence: JP)
  Receive Date: 20210423
  Receipt Date: 20210430
  Transmission Date: 20210717
  Serious: Yes (Other)
  Sender: FDA-Public Use
  Company Number: JP-MYLANLABS-2021M1023680

PATIENT
  Age: 71 Year
  Sex: Female

DRUGS (5)
  1. PACLITAXEL. [Concomitant]
     Active Substance: PACLITAXEL
     Indication: OVARIAN EPITHELIAL CANCER
     Dosage: 175 MILLIGRAM/SQ. METER, ADMINISTERED OVER 3 HOURS
     Route: 042
  2. DIPHENHYDRAMINE. [Concomitant]
     Active Substance: DIPHENHYDRAMINE
     Indication: CHEMOTHERAPY SIDE EFFECT PROPHYLAXIS
     Route: 048
  3. FAMOTIDINE. [Concomitant]
     Active Substance: FAMOTIDINE
     Indication: CHEMOTHERAPY SIDE EFFECT PROPHYLAXIS
     Route: 042
  4. CARBOPLATIN. [Suspect]
     Active Substance: CARBOPLATIN
     Indication: OVARIAN EPITHELIAL CANCER
     Dosage: AREA UNDER THE TIME?CONCENTRATION CURVE (AUC) 5 OF 5 MG MINUTE/ML; ADMINISTERED OVER 1 HOUR IN CYCLE
     Route: 042
  5. DEXAMETHASONE. [Concomitant]
     Active Substance: DEXAMETHASONE
     Indication: CHEMOTHERAPY SIDE EFFECT PROPHYLAXIS
     Route: 042

REACTIONS (6)
  - Dyspnoea [Unknown]
  - Bronchospasm [Unknown]
  - Pruritus [Recovered/Resolved]
  - Hypersensitivity [Unknown]
  - Palmar erythema [Recovered/Resolved]
  - Hypotension [Unknown]
